FAERS Safety Report 5654513-5 (Version None)
Quarter: 2008Q1

REPORT INFORMATION
  Report Type: 
  Country: None (occurrence: None)
  Receive Date: 20080307
  Receipt Date: 20080205
  Transmission Date: 20080703
  Serious: No
  Sender: FDA-Public Use
  Company Number: US-BAYER-200714899NA

PATIENT
  Age: 61 Year
  Sex: Female

DRUGS (7)
  1. CIPRO [Suspect]
     Indication: STAPHYLOCOCCAL INFECTION
     Dosage: TOTAL DAILY DOSE: 500 MG  UNIT DOSE: 250 MG
     Route: 048
     Dates: start: 20070801
  2. AMBIEN [Concomitant]
  3. DOXEPIN HCL [Concomitant]
  4. KLONOPIN [Concomitant]
  5. OMEPRAZOLE [Concomitant]
  6. MAXALT [Concomitant]
  7. EXCEDRIN [Concomitant]

REACTIONS (2)
  - BREAST SWELLING [None]
  - LOCAL SWELLING [None]
